FAERS Safety Report 10559792 (Version 1)
Quarter: 2014Q4

REPORT INFORMATION
  Report Type: Spontaneous
  Country: US (occurrence: None)
  Receive Date: 20141031
  Receipt Date: 20141031
  Transmission Date: 20150529
  Serious: Yes (Life-Threatening, Hospitalization, Disabling, Other)
  Sender: FDA-Public Use
  Company Number: None

PATIENT
  Age: 89 Year
  Sex: Female
  Weight: 57.61 kg

DRUGS (1)
  1. XARELTO [Suspect]
     Active Substance: RIVAROXABAN
     Indication: ATRIAL FIBRILLATION
     Dates: start: 20140530, end: 20141024

REACTIONS (11)
  - Transient ischaemic attack [None]
  - Abasia [None]
  - Cardiac failure [None]
  - Renal failure [None]
  - Confusional state [None]
  - Sedation [None]
  - General physical health deterioration [None]
  - Carbon monoxide poisoning [None]
  - Heart injury [None]
  - Decreased appetite [None]
  - Pulmonary function test abnormal [None]

NARRATIVE: CASE EVENT DATE: 20141026
